FAERS Safety Report 5811819-4 (Version None)
Quarter: 2008Q3

REPORT INFORMATION
  Report Type: 
  Country: None (occurrence: None)
  Receive Date: 20080715
  Receipt Date: 20080715
  Transmission Date: 20090109
  Serious: No
  Sender: FDA-Public Use
  Company Number: None

PATIENT
  Sex: Female

DRUGS (2)
  1. RIBAVIRIN [Suspect]
     Dosage: 200 MG 2 TABS AM + 2 PM PO
     Route: 048
  2. PEGASYS [Suspect]
     Dosage: 180MCG WEEKLY SQ
     Route: 058

REACTIONS (6)
  - HEADACHE [None]
  - INFLUENZA LIKE ILLNESS [None]
  - OPTIC NERVE DISORDER [None]
  - PYREXIA [None]
  - RASH [None]
  - RETINAL DISORDER [None]
